FAERS Safety Report 14249790 (Version 1)
Quarter: 2017Q4

REPORT INFORMATION
  Report Type: Spontaneous
  Country: US (occurrence: US)
  Receive Date: 20171205
  Receipt Date: 20171205
  Transmission Date: 20180321
  Serious: Yes (Other)
  Sender: FDA-Public Use
  Company Number: US-SUN PHARMACEUTICAL INDUSTRIES LTD-2017US-148372

PATIENT
  Age: 51 Year
  Sex: Male

DRUGS (13)
  1. LORAZEPAM. [Suspect]
     Active Substance: LORAZEPAM
     Indication: INSOMNIA
     Dosage: 1 MG, TID
     Route: 048
     Dates: start: 2014
  2. BUPROPION. [Suspect]
     Active Substance: BUPROPION
     Dosage: 450 MG, DAILY (Q AM)
     Route: 048
     Dates: start: 20150304
  3. BUPROPION. [Suspect]
     Active Substance: BUPROPION
     Dosage: 300 MG, DAILY (Q AM)
     Route: 048
     Dates: start: 201410
  4. FLUOXETINE [Suspect]
     Active Substance: FLUOXETINE HYDROCHLORIDE
     Indication: MAJOR DEPRESSION
     Dosage: 20 MG, DAILY (Q AM)
     Route: 048
     Dates: start: 1991
  5. LEVOTHYROXINE. [Concomitant]
     Active Substance: LEVOTHYROXINE
     Dosage: 0.150 MG, DAILY
  6. ESOMEPRAZOLE [Concomitant]
     Active Substance: ESOMEPRAZOLE
  7. BUPROPION. [Suspect]
     Active Substance: BUPROPION
     Dosage: 600 MG, DAILY (Q AM)
     Route: 048
     Dates: start: 2015
  8. LORAZEPAM. [Suspect]
     Active Substance: LORAZEPAM
     Indication: GENERALISED ANXIETY DISORDER
     Dosage: 0.5-0.75 MG TID AND 2 MG HS
     Route: 048
     Dates: start: 201501
  9. VORTIOXETINE. [Suspect]
     Active Substance: VORTIOXETINE
     Indication: GENERALISED ANXIETY DISORDER
     Dosage: 20 MG, DAILY (Q DAY)
     Route: 048
     Dates: start: 201409, end: 201410
  10. BUPROPION. [Suspect]
     Active Substance: BUPROPION
     Indication: MAJOR DEPRESSION
     Dosage: 300 MG, DAILY (Q AM)
     Route: 048
     Dates: start: 2014
  11. CITALOPRAM [Suspect]
     Active Substance: CITALOPRAM HYDROBROMIDE
     Indication: MAJOR DEPRESSION
     Dosage: 20 MG, DAILY (Q AM)
     Route: 065
  12. VORTIOXETINE. [Suspect]
     Active Substance: VORTIOXETINE
     Indication: MAJOR DEPRESSION
     Dosage: 10 MG, DAILY (Q DAY)
     Route: 065
     Dates: start: 201408
  13. LORAZEPAM. [Suspect]
     Active Substance: LORAZEPAM
     Dosage: 2 MG, DAILY (HS)
     Route: 048

REACTIONS (2)
  - Drug ineffective [Recovered/Resolved]
  - Sexual dysfunction [Unknown]
